FAERS Safety Report 8304828-7 (Version None)
Quarter: 2012Q2

REPORT INFORMATION
  Report Type: 
  Country: None (occurrence: None)
  Receive Date: 20120423
  Receipt Date: 20120416
  Transmission Date: 20120825
  Serious: Yes (Hospitalization, Other)
  Sender: FDA-Public Use
  Company Number: IT-PFIZER INC-2012094958

PATIENT
  Age: 52 Year
  Sex: Female

DRUGS (1)
  1. TRIAZOLAM [Suspect]
     Dosage: UNK

REACTIONS (1)
  - NON-CARDIOGENIC PULMONARY OEDEMA [None]
